FAERS Safety Report 8958575 (Version 8)
Quarter: 2013Q3

REPORT INFORMATION
  Report Type: Spontaneous
  Country: US (occurrence: None)
  Receive Date: 20121203
  Receipt Date: 20130815
  Transmission Date: 20140515
  Serious: Yes (Death, Life-Threatening, Hospitalization, Other)
  Sender: FDA-Public Use
  Company Number: ADR-2012-02099

PATIENT
  Age: 31 Year
  Sex: Male

DRUGS (1)
  1. LIORESAL INTRATHECAL (BACLOFEN INJECTION)2000MCG/ML [Suspect]
     Indication: MUSCLE SPASTICITY
     Dosage: 484.2 MCG/DAY

REACTIONS (27)
  - Implant site infection [None]
  - Staphylococcus test positive [None]
  - Pneumonia [None]
  - Pulmonary oedema [None]
  - Pleural effusion [None]
  - Cardiac arrest [None]
  - Implant site discharge [None]
  - Acute respiratory distress syndrome [None]
  - Nausea [None]
  - Vomiting [None]
  - Urosepsis [None]
  - Multi-organ failure [None]
  - Renal failure acute [None]
  - Cardio-respiratory arrest [None]
  - Urinary tract infection enterococcal [None]
  - Tachycardia [None]
  - Skin ulcer [None]
  - Acute respiratory failure [None]
  - Haemodynamic instability [None]
  - Hyperglycaemia [None]
  - Pyrexia [None]
  - Respiratory depression [None]
  - Staphylococcus test positive [None]
  - Erythema [None]
  - Chills [None]
  - Multi-organ failure [None]
  - Renal failure acute [None]
